FAERS Safety Report 23227618 (Version 1)
Quarter: 2023Q4

REPORT INFORMATION
  Report Type: Spontaneous
  Country: US (occurrence: US)
  Receive Date: 20231124
  Receipt Date: 20231124
  Transmission Date: 20240109
  Serious: No
  Sender: FDA-Public Use
  Company Number: US-TEVA-2023-US-2946397

PATIENT
  Age: 38 Year
  Sex: Female

DRUGS (2)
  1. ETHINYL ESTRADIOL\NORGESTIMATE [Suspect]
     Active Substance: ETHINYL ESTRADIOL\NORGESTIMATE
     Indication: Menstruation irregular
     Dosage: 0.180 MG / 0.025 MG; 0.215 MG / 0.025 MG; 0.250 MG / 0.025 MG
     Route: 065
     Dates: start: 20231002
  2. ETHINYL ESTRADIOL\NORGESTIMATE [Suspect]
     Active Substance: ETHINYL ESTRADIOL\NORGESTIMATE
     Dosage: 0.180 MG / 0.025 MG; 0.215 MG / 0.025 MG; 0.250 MG / 0.025 MG
     Route: 065
     Dates: start: 20231002

REACTIONS (11)
  - Heavy menstrual bleeding [Unknown]
  - Pelvic pain [Unknown]
  - Uterine disorder [Unknown]
  - Intermenstrual bleeding [Unknown]
  - Abdominal pain [Unknown]
  - Adnexa uteri pain [Unknown]
  - Uterine pain [Unknown]
  - Muscle spasms [Unknown]
  - Menstruation irregular [Unknown]
  - Adverse event [Unknown]
  - Product prescribing issue [Unknown]

NARRATIVE: CASE EVENT DATE: 20230101
